FAERS Safety Report 8877852 (Version 1)
Quarter: 2012Q4

REPORT INFORMATION
  Report Type: 
  Country: US (occurrence: US)
  Receive Date: 20121025
  Receipt Date: 20121025
  Transmission Date: 20130627
  Serious: Yes (Disabling, Other)
  Sender: FDA-Public Use
  Company Number: US-AMGEN-USASP2012019951

PATIENT
  Sex: Female
  Weight: 69.84 kg

DRUGS (4)
  1. ENBREL [Suspect]
     Indication: RHEUMATOID ARTHRITIS
     Dosage: 25 mg, 2 times/wk
     Route: 058
     Dates: start: 20030201, end: 20110301
  2. METHOTREXATE [Concomitant]
     Dosage: UNK
     Dates: start: 200209
  3. SULFASALAZINE [Concomitant]
     Dosage: UNK
     Dates: start: 2002, end: 2005
  4. GOLD [Concomitant]
     Dosage: UNK
     Route: 030
     Dates: start: 200209

REACTIONS (1)
  - Malignant melanoma [Unknown]
